FAERS Safety Report 6170969-6 (Version None)
Quarter: 2009Q2

REPORT INFORMATION
  Report Type: 
  Country: None (occurrence: None)
  Receive Date: 20090427
  Receipt Date: 20090427
  Transmission Date: 20091009
  Serious: Yes (Disabling)
  Sender: FDA-Public Use
  Company Number: None

PATIENT
  Sex: Male
  Weight: 120.2032 kg

DRUGS (2)
  1. LEVAQUIN [Suspect]
     Indication: SINUSITIS
     Dosage: SEE ABOVE ORAL
     Route: 048
     Dates: start: 20000301, end: 20080301
  2. LEVAQUIN [Suspect]
     Indication: SINUSITIS
     Dosage: SEE ABOVE, IN 6 DIFFERENT EPISODES OF TR

REACTIONS (1)
  - EPICONDYLITIS [None]
